FAERS Safety Report 5006641-5 (Version None)
Quarter: 2006Q2

REPORT INFORMATION
  Report Type: 
  Country: None (occurrence: None)
  Receive Date: 20060519
  Receipt Date: 20060511
  Transmission Date: 20061013
  Serious: Yes (Death)
  Sender: FDA-Public Use
  Company Number: US-JNJFOC-20060305997

PATIENT
  Sex: Female
  Weight: 67.13 kg

DRUGS (13)
  1. TOPAMAX [Suspect]
     Indication: MIGRAINE
     Route: 048
  2. CLINDAMYCIN [Concomitant]
  3. ACIPHEX [Concomitant]
  4. XANAX [Concomitant]
  5. ASACOL [Concomitant]
  6. METHADOSE [Concomitant]
     Indication: ANALGESIC THERAPY
  7. TRIAMTERENE AND HYDROCHLOROTHIAZIDE [Concomitant]
  8. TRIAMTERENE AND HYDROCHLOROTHIAZIDE [Concomitant]
  9. PARAFON FORTE [Concomitant]
  10. PARAFON FORTE [Concomitant]
  11. LORTAB [Concomitant]
  12. LORTAB [Concomitant]
  13. DICYCLOMINE [Concomitant]

REACTIONS (3)
  - ABDOMINAL PAIN UPPER [None]
  - ARTERIOSCLEROSIS [None]
  - VOMITING [None]
